FAERS Safety Report 14786674 (Version 4)
Quarter: 2019Q3

REPORT INFORMATION
  Report Type: Spontaneous
  Country: US (occurrence: US)
  Receive Date: 20180420
  Receipt Date: 20190801
  Transmission Date: 20191004
  Serious: Yes (Other)
  Sender: FDA-Public Use
  Company Number: US-ASTRAZENECA-2018SE47301

PATIENT
  Age: 70 Year
  Sex: Female
  Weight: 79.8 kg

DRUGS (27)
  1. NEXIUM [Suspect]
     Active Substance: ESOMEPRAZOLE MAGNESIUM
     Indication: HERPES DERMATITIS
     Route: 048
     Dates: start: 2008, end: 2016
  2. DEXILANT [Suspect]
     Active Substance: DEXLANSOPRAZOLE
     Indication: APHTHOUS ULCER
     Dosage: NIGHT
     Route: 065
     Dates: start: 2014
  3. LEXAPRO [Concomitant]
     Active Substance: ESCITALOPRAM OXALATE
  4. POTASSIUM CHLORIDE. [Concomitant]
     Active Substance: POTASSIUM CHLORIDE
  5. MECLIZINE [Concomitant]
     Active Substance: MECLIZINE HYDROCHLORIDE
  6. TRAMADOL. [Concomitant]
     Active Substance: TRAMADOL
  7. PREVACID [Suspect]
     Active Substance: LANSOPRAZOLE
     Indication: APHTHOUS ULCER
     Route: 065
     Dates: start: 2008, end: 2016
  8. PREVACID [Suspect]
     Active Substance: LANSOPRAZOLE
     Indication: APHTHOUS ULCER
     Route: 065
     Dates: start: 2012
  9. CARAFATE [Concomitant]
     Active Substance: SUCRALFATE
  10. DEXILANT [Suspect]
     Active Substance: DEXLANSOPRAZOLE
     Indication: APHTHOUS ULCER
     Route: 065
     Dates: start: 2012
  11. EVISTA [Concomitant]
     Active Substance: RALOXIFENE HYDROCHLORIDE
  12. OXYCODONE [Concomitant]
     Active Substance: OXYCODONE
  13. NEXIUM 24HR [Suspect]
     Active Substance: ESOMEPRAZOLE MAGNESIUM
     Route: 048
     Dates: start: 2008, end: 2016
  14. PRILOSEC OTC [Suspect]
     Active Substance: OMEPRAZOLE MAGNESIUM
     Route: 048
     Dates: start: 2008, end: 2016
  15. DEXILANT [Suspect]
     Active Substance: DEXLANSOPRAZOLE
     Indication: APHTHOUS ULCER
     Dosage: MORNING
     Route: 065
     Dates: start: 2014
  16. PREVACID 24 HR [Suspect]
     Active Substance: LANSOPRAZOLE
     Route: 065
     Dates: start: 2008, end: 2016
  17. PROTONIX [Suspect]
     Active Substance: PANTOPRAZOLE SODIUM
     Route: 065
     Dates: start: 2008, end: 2016
  18. CELEBREX [Concomitant]
     Active Substance: CELECOXIB
  19. HYDROCODONE BITARTRATE AND ACETAMINOPHEN [Concomitant]
     Active Substance: ACETAMINOPHEN\HYDROCODONE BITARTRATE
  20. NEXIUM [Suspect]
     Active Substance: ESOMEPRAZOLE MAGNESIUM
     Indication: HERPES DERMATITIS
     Route: 048
     Dates: start: 2014, end: 201901
  21. PRILOSEC [Suspect]
     Active Substance: OMEPRAZOLE MAGNESIUM
     Route: 048
     Dates: start: 2008, end: 2016
  22. MODAFINIL. [Concomitant]
     Active Substance: MODAFINIL
  23. DEXILANT [Suspect]
     Active Substance: DEXLANSOPRAZOLE
     Indication: APHTHOUS ULCER
     Route: 065
     Dates: start: 2008, end: 2016
  24. VITAMIN B NOS [Concomitant]
     Active Substance: VITAMIN B
  25. NEXIUM [Suspect]
     Active Substance: ESOMEPRAZOLE MAGNESIUM
     Indication: HERPES DERMATITIS
     Route: 048
     Dates: start: 2012
  26. PREVACID [Suspect]
     Active Substance: LANSOPRAZOLE
     Indication: APHTHOUS ULCER
     Route: 065
     Dates: start: 2009, end: 2014
  27. BENTYL [Concomitant]
     Active Substance: DICYCLOMINE HYDROCHLORIDE

REACTIONS (6)
  - Renal injury [Unknown]
  - Rebound acid hypersecretion [Unknown]
  - Chronic kidney disease [Unknown]
  - Acute kidney injury [Unknown]
  - Renal impairment [Unknown]
  - Renal failure [Not Recovered/Not Resolved]

NARRATIVE: CASE EVENT DATE: 2016
